FAERS Safety Report 16039987 (Version 1)
Quarter: 2019Q1

REPORT INFORMATION
  Report Type: Spontaneous
  Country: NL (occurrence: NL)
  Receive Date: 20190306
  Receipt Date: 20190306
  Transmission Date: 20190418
  Serious: Yes (Other)
  Sender: FDA-Public Use
  Company Number: NL-HBP-2019NL018426

PATIENT
  Age: 76 Year
  Sex: Male

DRUGS (3)
  1. DEXAMETHASONE. [Concomitant]
     Active Substance: DEXAMETHASONE
     Dosage: 10 MG ON STARTING DAY 1, 8 MG ON DAY 2 AND 8 MG ON DAY 3
  2. AKYNZEO [Suspect]
     Active Substance: NETUPITANT\PALONOSETRON HYDROCHLORIDE
     Dosage: 1 DOSAGE FORM, SINGLE, 6TH CYCLE
     Route: 048
     Dates: start: 20180730, end: 20180730
  3. AKYNZEO [Suspect]
     Active Substance: NETUPITANT\PALONOSETRON HYDROCHLORIDE
     Indication: PROPHYLAXIS OF NAUSEA AND VOMITING
     Dosage: 1 DOSAGE FORM, SINGLE, FIRST CYCLE
     Route: 048
     Dates: start: 20180416, end: 20180416

REACTIONS (3)
  - Chest pain [Unknown]
  - Constipation [Unknown]
  - Hiccups [Unknown]

NARRATIVE: CASE EVENT DATE: 20180416
